FAERS Safety Report 4784187-7 (Version None)
Quarter: 2005Q3

REPORT INFORMATION
  Report Type: 
  Country: None (occurrence: None)
  Receive Date: 20050928
  Receipt Date: 20050914
  Transmission Date: 20060218
  Serious: Yes (Death, Other)
  Sender: FDA-Public Use
  Company Number: 2005-DE-03710GD

PATIENT
  Age: 41 Year
  Sex: Female

DRUGS (1)
  1. HYDROMORPHOPNE (HYDROMORPHONE) [Suspect]
     Indication: PAIN

REACTIONS (2)
  - RESPIRATORY RATE DECREASED [None]
  - SEDATION [None]
